FAERS Safety Report 7380660-6 (Version None)
Quarter: 2011Q1

REPORT INFORMATION
  Report Type: 
  Country: None (occurrence: None)
  Receive Date: 20110325
  Receipt Date: 20110325
  Transmission Date: 20110831
  Serious: Yes (Hospitalization)
  Sender: FDA-Public Use
  Company Number: None

PATIENT
  Age: 76 Year
  Sex: Female
  Weight: 81.9 kg

DRUGS (14)
  1. CELEBREX [Suspect]
     Indication: ARTHRITIS
     Dosage: 200MG BID PO CHRONIC
     Route: 048
  2. TYLENOL (CAPLET) [Concomitant]
  3. DYAZIDE [Concomitant]
  4. TIAZAC [Concomitant]
  5. RESTORIL [Concomitant]
  6. CENTRUM SILVER [Concomitant]
  7. CITRACAL [Concomitant]
  8. PROBIOTIC [Concomitant]
  9. PREDNISONE [Suspect]
     Indication: SINUSITIS
     Dosage: 20MG DAILY PO  RECENT
     Route: 048
  10. ASPIRIN [Suspect]
  11. ZYRTEC [Concomitant]
  12. RANITIDINE HCL [Concomitant]
  13. NYSTATIN [Concomitant]
  14. FLUCONAZOLE [Concomitant]

REACTIONS (4)
  - GASTRITIS [None]
  - OESOPHAGITIS [None]
  - ANAEMIA [None]
  - GASTROINTESTINAL HAEMORRHAGE [None]
